FAERS Safety Report 16744453 (Version 5)
Quarter: 2020Q2

REPORT INFORMATION
  Report Type: Report from Study
  Country: US (occurrence: US)
  Receive Date: 20190827
  Receipt Date: 20200520
  Transmission Date: 20200713
  Serious: Yes (Hospitalization, Other)
  Sender: FDA-Public Use
  Company Number: US-ASTELLAS-2019US008234

PATIENT
  Age: 73 Year
  Sex: Male

DRUGS (4)
  1. ELIGARD [Concomitant]
     Active Substance: LEUPROLIDE ACETATE
     Indication: NEOPLASM MALIGNANT
  2. ENZALUTAMIDE [Suspect]
     Active Substance: ENZALUTAMIDE
     Indication: PROSTATE CANCER
     Route: 048
     Dates: start: 20190205, end: 20190815
  3. ENZALUTAMIDE [Suspect]
     Active Substance: ENZALUTAMIDE
     Route: 048
     Dates: start: 20200225
  4. XGEVA [Concomitant]
     Active Substance: DENOSUMAB
     Indication: NEOPLASM MALIGNANT
     Dosage: UNK UNK, UNKNOWN FREQ.
     Route: 065

REACTIONS (10)
  - Pain in jaw [Unknown]
  - Swelling face [Not Recovered/Not Resolved]
  - Osteomyelitis [Unknown]
  - Hyperaesthesia teeth [Unknown]
  - Ear discomfort [Not Recovered/Not Resolved]
  - Eye pain [Unknown]
  - Fatigue [Unknown]
  - Salivary gland enlargement [Not Recovered/Not Resolved]
  - Fall [Unknown]
  - Visual impairment [Recovering/Resolving]

NARRATIVE: CASE EVENT DATE: 2018
